FAERS Safety Report 9167002 (Version 1)
Quarter: 2013Q1

REPORT INFORMATION
  Report Type: Spontaneous
  Country: US (occurrence: US)
  Receive Date: 20130317
  Receipt Date: 20130317
  Transmission Date: 20140127
  Serious: No
  Sender: FDA-Public Use
  Company Number: US-009507513-1303USA007052

PATIENT
  Sex: Female

DRUGS (1)
  1. EMEND [Suspect]
     Dosage: 150 MG, UNK
     Route: 042
     Dates: start: 20130312

REACTIONS (1)
  - Infusion site extravasation [Unknown]
